FAERS Safety Report 5339945-7 (Version None)
Quarter: 2007Q2

REPORT INFORMATION
  Report Type: 
  Country: None (occurrence: None)
  Receive Date: 20070531
  Receipt Date: 20060915
  Transmission Date: 20071010
  Serious: Yes (Death, Life-Threatening)
  Sender: FDA-Public Use
  Company Number: IT-BAXTER-2006BH013371

PATIENT
  Age: 58 Year
  Sex: Male

DRUGS (6)
  1. HEPARIN SODIUM [Suspect]
     Indication: CORONARY ARTERY BYPASS
     Route: 065
  2. HEPARIN SODIUM [Suspect]
     Route: 065
  3. CARVEDILOL [Concomitant]
     Indication: PREOPERATIVE CARE
     Route: 065
  4. ENALAPRIL MALEATE [Concomitant]
     Indication: PREOPERATIVE CARE
     Route: 065
  5. FUROSEMIDE [Concomitant]
     Indication: PREOPERATIVE CARE
     Route: 065
  6. ASPIRIN [Concomitant]
     Indication: PREOPERATIVE CARE
     Route: 065

REACTIONS (6)
  - CARDIAC TAMPONADE [None]
  - HEPARIN-INDUCED THROMBOCYTOPENIA [None]
  - ISCHAEMIA [None]
  - OSTEOMYELITIS [None]
  - SEPSIS [None]
  - THROMBOSIS [None]
